FAERS Safety Report 5091580-4 (Version None)
Quarter: 2006Q3

REPORT INFORMATION
  Report Type: 
  Country: None (occurrence: None)
  Receive Date: 20060829
  Receipt Date: 20060821
  Transmission Date: 20061208
  Serious: Yes (Hospitalization)
  Sender: FDA-Public Use
  Company Number: US-AVENTIS-200618675GDDC

PATIENT
  Age: 60 Year
  Sex: Male
  Weight: 66.7 kg

DRUGS (10)
  1. TAXOTERE [Suspect]
     Indication: NEOPLASM MALIGNANT
     Route: 042
     Dates: start: 20060403, end: 20060403
  2. FLUOROURACIL [Suspect]
     Indication: NEOPLASM MALIGNANT
     Route: 042
     Dates: start: 20060408, end: 20060408
  3. ALLOPURINOL [Concomitant]
     Route: 048
  4. DOCUSATE SODIUM [Concomitant]
     Route: 048
  5. LISINOPRIL [Concomitant]
     Dosage: DOSE: 40 MG PO QAM, HOLD IF SBP{100
     Route: 048
  6. OMEPRAZOLE [Concomitant]
     Route: 048
  7. PENTOXIFYLLINE [Concomitant]
     Dosage: DOSE: 400 MG PO WITH MEALS
     Route: 048
  8. COMPAZINE [Concomitant]
     Indication: NAUSEA
     Dosage: DOSE: 10 MG PO Q6H PRN
     Route: 048
  9. DILTIAZEM HCL [Concomitant]
     Indication: VOMITING
     Route: 048
  10. METOPROLOL TARTRATE [Concomitant]
     Route: 048

REACTIONS (6)
  - CLUBBING [None]
  - CYANOSIS [None]
  - DYSPHAGIA [None]
  - DYSPHONIA [None]
  - DYSPNOEA [None]
  - OEDEMA PERIPHERAL [None]
